FAERS Safety Report 7830654-9 (Version None)
Quarter: 2011Q4

REPORT INFORMATION
  Report Type: 
  Country: None (occurrence: None)
  Receive Date: 20111021
  Receipt Date: 20111020
  Transmission Date: 20120403
  Serious: Yes (Other)
  Sender: FDA-Public Use
  Company Number: ES-PFIZER INC-2011195921

PATIENT
  Age: 60 Year
  Sex: Male

DRUGS (3)
  1. SINERGINA [Suspect]
     Indication: CONVULSION
     Dosage: 625 MG/DAY
     Route: 048
     Dates: start: 20110507, end: 20110525
  2. ACETAMINOPHEN [Concomitant]
     Indication: PYREXIA
     Dosage: UNK
     Route: 042
     Dates: start: 20110507
  3. PIPERACILLIN AND TAZOBACTAM [Suspect]
     Indication: PNEUMONIA
     Dosage: 12 G DAILY
     Route: 042
     Dates: start: 20110519, end: 20110529

REACTIONS (1)
  - CHOLESTASIS [None]
